FAERS Safety Report 18577643 (Version 2)
Quarter: 2021Q1

REPORT INFORMATION
  Report Type: Report from Study
  Country: US (occurrence: US)
  Receive Date: 20201203
  Receipt Date: 20210304
  Transmission Date: 20210419
  Serious: Yes (Hospitalization)
  Sender: FDA-Public Use
  Company Number: US-JNJFOC-20201147718

PATIENT
  Age: 57 Year
  Sex: Female
  Weight: 68.1 kg

DRUGS (11)
  1. SPRAVATO [Suspect]
     Active Substance: ESKETAMINE
     Dates: start: 20200702, end: 20200702
  2. SPRAVATO [Suspect]
     Active Substance: ESKETAMINE
     Dosage: 56MG, 2 TOTAL DOSES
     Dates: start: 20200928, end: 20201001
  3. SPRAVATO [Suspect]
     Active Substance: ESKETAMINE
     Indication: DEPRESSION
     Dates: start: 20200522, end: 20200522
  4. SPRAVATO [Suspect]
     Active Substance: ESKETAMINE
     Dates: start: 20201123, end: 20201123
  5. SPRAVATO [Suspect]
     Active Substance: ESKETAMINE
     Dosage: 84MG, 4 TOTAL DOSES
     Dates: start: 20201026, end: 20201112
  6. SPRAVATO [Suspect]
     Active Substance: ESKETAMINE
     Dosage: 84MG, 5 TOTAL DOSES
     Dates: start: 20200529, end: 20200622
  7. SPRAVATO [Suspect]
     Active Substance: ESKETAMINE
     Dosage: 84 MG, 3 TOTAL DOSES
     Dates: start: 20201013, end: 20201019
  8. SPRAVATO [Suspect]
     Active Substance: ESKETAMINE
     Dates: start: 20201022, end: 20201022
  9. SPRAVATO [Suspect]
     Active Substance: ESKETAMINE
     Dates: start: 20200827, end: 20200827
  10. SPRAVATO [Suspect]
     Active Substance: ESKETAMINE
     Dosage: 84MG, 11 DOSES TOTAL
     Dates: start: 20200713, end: 20200824
  11. SPRAVATO [Suspect]
     Active Substance: ESKETAMINE
     Dosage: 84MG, 6 TOTAL DOSES
     Dates: start: 20200831, end: 20200924

REACTIONS (1)
  - Dissociation [Recovered/Resolved]

NARRATIVE: CASE EVENT DATE: 20201123
